FAERS Safety Report 5612200-3 (Version None)
Quarter: 2008Q1

REPORT INFORMATION
  Report Type: 
  Country: None (occurrence: None)
  Receive Date: 20080204
  Receipt Date: 20080125
  Transmission Date: 20080703
  Serious: Yes (Death)
  Sender: FDA-Public Use
  Company Number: JP-NOVOPROD-234868

PATIENT

DRUGS (4)
  1. NOVOSEVEN [Suspect]
     Indication: OFF LABEL USE
     Dosage: 102 UG/KG TIMES 4
     Route: 042
     Dates: start: 20031228, end: 20040101
  2. NOVOSEVEN [Suspect]
     Dates: start: 20040101
  3. SOLU-MEDROL [Concomitant]
     Indication: SEPSIS
     Dosage: 1 G, UNK
     Route: 042
     Dates: start: 20031228, end: 20031229
  4. VANCOMYCIN HYDROCHLORIDE [Concomitant]
     Indication: SEPSIS
     Dosage: 1 G, UNK
     Route: 042
     Dates: start: 20031228, end: 20031229

REACTIONS (1)
  - MULTI-ORGAN DISORDER [None]
